FAERS Safety Report 8603544-1 (Version None)
Quarter: 2012Q3

REPORT INFORMATION
  Report Type: 
  Country: None (occurrence: None)
  Receive Date: 20120817
  Receipt Date: 20120813
  Transmission Date: 20120928
  Serious: Yes (Hospitalization, Other)
  Sender: FDA-Public Use
  Company Number: CA-ROCHE-1075267

PATIENT
  Sex: Female
  Weight: 124 kg

DRUGS (4)
  1. PREDNISONE TAB [Concomitant]
  2. ACTEMRA [Suspect]
     Indication: RHEUMATOID ARTHRITIS
     Route: 042
     Dates: start: 20110225
  3. ZESTORETIC [Concomitant]
  4. CENTRUM [Concomitant]

REACTIONS (6)
  - PROCEDURAL HAEMORRHAGE [None]
  - STAPHYLOCOCCAL INFECTION [None]
  - KNEE ARTHROPLASTY [None]
  - ARTHRITIS INFECTIVE [None]
  - WOUND [None]
  - HAEMATOMA [None]
